FAERS Safety Report 23735150 (Version 1)
Quarter: 2024Q2

REPORT INFORMATION
  Report Type: Spontaneous
  Country: US (occurrence: US)
  Receive Date: 20240412
  Receipt Date: 20240412
  Transmission Date: 20240716
  Serious: Yes (Other)
  Sender: FDA-Public Use
  Company Number: US-002147023-NVSC2024US075360

PATIENT
  Sex: Male
  Weight: 58.97 kg

DRUGS (2)
  1. ENTRESTO [Suspect]
     Active Substance: SACUBITRIL\VALSARTAN
     Indication: Cardiac failure
     Dosage: UNK
     Route: 065
  2. FARXIGA [Concomitant]
     Active Substance: DAPAGLIFLOZIN PROPANEDIOL
     Indication: Cardiac failure
     Dosage: UNK
     Route: 065

REACTIONS (5)
  - Splenomegaly [Unknown]
  - Abdominal pain [Unknown]
  - Ejection fraction decreased [Unknown]
  - Weight decreased [Unknown]
  - Fatigue [Unknown]
